FAERS Safety Report 25327646 (Version 2)
Quarter: 2025Q2

REPORT INFORMATION
  Report Type: Spontaneous
  Country: JP (occurrence: JP)
  Receive Date: 20250517
  Receipt Date: 20250617
  Transmission Date: 20250717
  Serious: Yes (Other)
  Sender: MERCK SHARP & DOHME LLC
  Company Number: JP-009507513-2284856

PATIENT
  Age: 88 Year
  Sex: Male
  Weight: 72.5 kg

DRUGS (13)
  1. LAGEVRIO [Suspect]
     Active Substance: MOLNUPIRAVIR
     Indication: COVID-19
     Dosage: STRENGTH: 200 MG, 4 CAPSULES, TWICE A DAY.
     Route: 048
     Dates: start: 20221014, end: 20221017
  2. Clopidogrel [SANIK] [Concomitant]
     Route: 048
  3. VONOPRAZAN FUMARATE [Concomitant]
     Active Substance: VONOPRAZAN FUMARATE
     Route: 048
  4. TSUMURA Goshajinkigan Extract GRANULES [Concomitant]
     Route: 048
  5. Rosuvastatin Tablets 2.5 mg [DSEP] [Concomitant]
     Route: 048
  6. VIBEGRON [Concomitant]
     Active Substance: VIBEGRON
     Route: 048
  7. Bicalutamide OD Tablets 80 mg ^DSEP^ [Concomitant]
     Route: 048
  8. Mosapride Citrate Tablets 5 mg ^SHIN^ [Concomitant]
     Route: 048
  9. Brotizolam OD Tablets 0.25 mg ^Teva^ [Concomitant]
     Route: 048
  10. ASPIRIN [Concomitant]
     Active Substance: ASPIRIN
     Route: 048
  11. Amlodipine OD Tablets 5 mg ^NS^ [Concomitant]
     Route: 048
  12. Allopurinol Tablets 100 mg ^SAWAI^ [Concomitant]
     Route: 048
  13. Enalapril Maleate Tablets 2.5 mg ^NikP^ [Concomitant]
     Route: 048

REACTIONS (1)
  - Rash [Recovering/Resolving]

NARRATIVE: CASE EVENT DATE: 20221016
